FAERS Safety Report 17996967 (Version 2)
Quarter: 2020Q4

REPORT INFORMATION
  Report Type: Spontaneous
  Country: GB (occurrence: GB)
  Receive Date: 20200709
  Receipt Date: 20201027
  Transmission Date: 20210113
  Serious: Yes (Other)
  Sender: FDA-Public Use
  Company Number: GB-SUN PHARMACEUTICAL INDUSTRIES LTD-2020RR-252833

PATIENT
  Age: 45 Year
  Sex: Female
  Weight: 84 kg

DRUGS (4)
  1. IVABRADINE HYDROCHLORIDE [Concomitant]
     Active Substance: IVABRADINE HYDROCHLORIDE
     Indication: PRODUCT USED FOR UNKNOWN INDICATION
     Dosage: ()
     Route: 065
  2. OXYBUTYNIN HYDROCHLORIDE [Concomitant]
     Active Substance: OXYBUTYNIN CHLORIDE
     Indication: PRODUCT USED FOR UNKNOWN INDICATION
     Dosage: ()
     Route: 065
  3. LAMOTRIGINE. [Concomitant]
     Active Substance: LAMOTRIGINE
     Indication: PRODUCT USED FOR UNKNOWN INDICATION
     Dosage: ()
     Route: 065
  4. VENLAFAXINE [Suspect]
     Active Substance: VENLAFAXINE HYDROCHLORIDE
     Indication: DEPRESSION
     Dosage: 37.5 MILLIGRAM
     Route: 048
     Dates: start: 20200609, end: 20200610

REACTIONS (5)
  - Somnolence [Recovering/Resolving]
  - Headache [Recovering/Resolving]
  - Nausea [Recovering/Resolving]
  - Mydriasis [Recovering/Resolving]
  - Vision blurred [Recovering/Resolving]

NARRATIVE: CASE EVENT DATE: 20200609
